FAERS Safety Report 15792342 (Version 1)
Quarter: 2019Q1

REPORT INFORMATION
  Report Type: Spontaneous
  Country: GB (occurrence: GB)
  Receive Date: 20190107
  Receipt Date: 20190107
  Transmission Date: 20190417
  Serious: Yes (Hospitalization, Other)
  Sender: FDA-Public Use
  Company Number: GB-LUPIN PHARMACEUTICALS INC.-2018-09158

PATIENT
  Age: 53 Year
  Sex: Female

DRUGS (4)
  1. BUPIVACAINE. [Concomitant]
     Active Substance: BUPIVACAINE
     Indication: PRODUCT USED FOR UNKNOWN INDICATION
     Dosage: UNK (5 ML 0.5%)
     Route: 065
  2. DOLUTEGRAVIR [Interacting]
     Active Substance: DOLUTEGRAVIR
     Indication: HIV INFECTION
     Dosage: UNK
     Route: 065
  3. COBICISTAT W/DARUNAVIR [Interacting]
     Active Substance: COBICISTAT\DARUNAVIR ETHANOLATE
     Indication: HIV INFECTION
     Dosage: UNK
     Route: 065
  4. TRIAMCINOLONE ACETONIDE. [Suspect]
     Active Substance: TRIAMCINOLONE ACETONIDE
     Indication: BURSITIS
     Dosage: 40 MG, UNK
     Route: 014

REACTIONS (2)
  - Adrenal insufficiency [Recovered/Resolved]
  - Drug interaction [Unknown]
